FAERS Safety Report 9315248 (Version 1)
Quarter: 2013Q2

REPORT INFORMATION
  Report Type: Spontaneous
  Country: US (occurrence: US)
  Receive Date: 20130529
  Receipt Date: 20130529
  Transmission Date: 20140414
  Serious: Yes (Hospitalization, Other)
  Sender: FDA-Public Use
  Company Number: US201008002220

PATIENT
  Age: 52 Year
  Sex: Female
  Weight: 124.71 kg

DRUGS (12)
  1. BYETTA PEN DISPOSABLE [Suspect]
     Route: 058
  2. BYETTA PEN DISPOSABLE [Suspect]
     Route: 058
     Dates: start: 20070621
  3. BYETTA PEN DISPOSABLE [Suspect]
     Route: 058
  4. BYETTA PEN DISPOSABLE [Suspect]
     Route: 058
     Dates: start: 20070907
  5. BYETTA PEN DISPOSABLE [Suspect]
     Route: 058
     Dates: start: 20080609
  6. PERCOCET [Concomitant]
  7. ZOFRAN [Concomitant]
  8. SCOPOLAMINE [Concomitant]
     Dosage: PATCH
  9. GAVISCON [Concomitant]
  10. SENOKOT [Concomitant]
  11. REGLAN [Concomitant]
  12. COLACE [Concomitant]

REACTIONS (4)
  - Adenocarcinoma pancreas [Unknown]
  - Metastatic neoplasm [Unknown]
  - Pancreatitis [Unknown]
  - Injury [Unknown]
